FAERS Safety Report 24150729 (Version 1)
Quarter: 2024Q3

REPORT INFORMATION
  Report Type: Spontaneous
  Country: CN (occurrence: CN)
  Receive Date: 20240730
  Receipt Date: 20240730
  Transmission Date: 20241017
  Serious: Yes (Other)
  Sender: NOVAST
  Company Number: CN-NOVAST LABORATORIES INC.-2024NOV000280

PATIENT
  Age: 64 Year
  Sex: Male
  Weight: 76 kg

DRUGS (8)
  1. OXALIPLATIN [Suspect]
     Active Substance: OXALIPLATIN
     Indication: Colon cancer
     Dosage: 250 MILLIGRAM, INTRAVENOUS GTT
     Dates: start: 20230315
  2. OXALIPLATIN [Suspect]
     Active Substance: OXALIPLATIN
     Dosage: 250 MILLIGRAM,  INTRAVENOUS GTT
     Dates: start: 20230407
  3. OXALIPLATIN [Suspect]
     Active Substance: OXALIPLATIN
     Dosage: 250 MILLIGRAM, INTRAVENOUS GTT
     Dates: start: 20230508
  4. OXALIPLATIN [Suspect]
     Active Substance: OXALIPLATIN
     Dosage: 250 MILLIGRAM, INTRAVENOUS GTT
     Dates: start: 20230612
  5. CAPECITABINE [Suspect]
     Active Substance: CAPECITABINE
     Indication: Colon cancer
     Dosage: 2.0 GRAM, BID, DAYS 1-14
     Route: 048
     Dates: start: 20230315
  6. CAPECITABINE [Suspect]
     Active Substance: CAPECITABINE
     Dosage: 2.0 GRAM, BID, DAYS 1-14
     Route: 048
     Dates: start: 20230407
  7. CAPECITABINE [Suspect]
     Active Substance: CAPECITABINE
     Dosage: 2.0 GRAM, BID, DAYS 1-14
     Route: 048
     Dates: start: 20230508
  8. CAPECITABINE [Suspect]
     Active Substance: CAPECITABINE
     Dosage: 2.0 GRAM, BID, DAYS 1-14
     Route: 048
     Dates: start: 20230612

REACTIONS (1)
  - Deep vein thrombosis [Recovering/Resolving]

NARRATIVE: CASE EVENT DATE: 20230403
